FAERS Safety Report 19356474 (Version 1)
Quarter: 2021Q2

REPORT INFORMATION
  Report Type: Spontaneous
  Country: US (occurrence: US)
  Receive Date: 20210602
  Receipt Date: 20210602
  Transmission Date: 20210717
  Serious: Yes (Other)
  Sender: FDA-Public Use
  Company Number: None

PATIENT
  Age: 40 Year
  Sex: Male
  Weight: 78.75 kg

DRUGS (1)
  1. GA?68 DOTATATE [Suspect]
     Active Substance: DOTATATE GALLIUM GA-68
     Indication: PANCREATIC NEUROENDOCRINE TUMOUR METASTATIC
     Route: 040

REACTIONS (5)
  - Flushing [None]
  - Malaise [None]
  - Nausea [None]
  - Chest pain [None]
  - Diarrhoea [None]

NARRATIVE: CASE EVENT DATE: 20180831
